FAERS Safety Report 7638005-X (Version None)
Quarter: 2011Q3

REPORT INFORMATION
  Report Type: 
  Country: None (occurrence: None)
  Receive Date: 20110722
  Receipt Date: 20110722
  Transmission Date: 20111222
  Serious: Yes (Hospitalization)
  Sender: FDA-Public Use
  Company Number: None

PATIENT
  Sex: Female
  Weight: 64.55 kg

DRUGS (2)
  1. CARBOPLATIN [Suspect]
     Dosage: 457 MG
     Dates: end: 20110707
  2. PACLITAXEL [Suspect]
     Dosage: 303 MG
     Dates: end: 20110707

REACTIONS (2)
  - ABDOMINAL PAIN [None]
  - MALIGNANT ASCITES [None]
